FAERS Safety Report 10762957 (Version 1)
Quarter: 2015Q1

REPORT INFORMATION
  Report Type: Spontaneous
  Country: IN (occurrence: IN)
  Receive Date: 20150204
  Receipt Date: 20150204
  Transmission Date: 20150721
  Serious: Yes (Other)
  Sender: FDA-Public Use
  Company Number: IN-WATSON-2015-01169

PATIENT
  Age: 18 Year
  Sex: Female

DRUGS (4)
  1. VALPROIC ACID (UNKNOWN) [Suspect]
     Active Substance: VALPROIC ACID
     Indication: BIPOLAR DISORDER
     Dosage: 1 MG, DAILY
     Route: 065
  2. LITHIUM [Concomitant]
     Active Substance: LITHIUM CARBONATE
     Indication: BIPOLAR DISORDER
     Dosage: 900 MG, DAILY
     Route: 065
  3. RISPERIDONE (UNKNOWN) [Suspect]
     Active Substance: RISPERIDONE
     Indication: BIPOLAR DISORDER
     Dosage: 3 MG, DAILY
     Route: 065
  4. ARIPIPRAZOLE (UNKNOWN) [Suspect]
     Active Substance: ARIPIPRAZOLE
     Indication: BIPOLAR DISORDER
     Dosage: 15 MG, DAILY
     Route: 065

REACTIONS (5)
  - Resting tremor [Unknown]
  - Hyperprolactinaemia [Recovered/Resolved]
  - Oligomenorrhoea [Recovered/Resolved]
  - Cogwheel rigidity [Unknown]
  - Weight increased [Unknown]
